FAERS Safety Report 7690342-9 (Version None)
Quarter: 2011Q3

REPORT INFORMATION
  Report Type: 
  Country: None (occurrence: None)
  Receive Date: 20110818
  Receipt Date: 20110815
  Transmission Date: 20111222
  Serious: Yes (Hospitalization)
  Sender: FDA-Public Use
  Company Number: DE-SHIRE-SPV1-2011-01070

PATIENT
  Sex: Female
  Weight: 1.35 kg

DRUGS (7)
  1. REPLAGAL [Suspect]
     Dosage: 10.5 MG, 1X/2WKS
     Route: 064
     Dates: start: 20101214, end: 20110625
  2. FOLSAN [Concomitant]
     Indication: FOLATE DEFICIENCY
     Dosage: 5 MG, 1X/DAY:QD
     Route: 064
  3. NICOTINE [Concomitant]
     Indication: PRODUCT USED FOR UNKNOWN INDICATION
     Dosage: 1 DF, 1X/DAY:QD
     Route: 064
  4. MUCOSOLVAN [Concomitant]
     Indication: CHRONIC SINUSITIS
     Dosage: UNK, UNKNOWN
     Route: 064
  5. REPLAGAL [Suspect]
     Indication: FABRY'S DISEASE
     Dosage: 10.5 MG, 1X/2WKS
     Route: 064
     Dates: start: 20101214, end: 20110625
  6. MCP                                /00041901/ [Concomitant]
     Indication: NAUSEA
     Dosage: 30 GTT, AS REQ'D
     Route: 064
  7. IBUPROFEN [Concomitant]
     Indication: PAIN
     Dosage: 800 MG, AS REQ'D
     Route: 064

REACTIONS (2)
  - ARRHYTHMIA NEONATAL [None]
  - PREMATURE BABY [None]
